FAERS Safety Report 6786548-3 (Version None)
Quarter: 2010Q2

REPORT INFORMATION
  Report Type: 
  Country: None (occurrence: None)
  Receive Date: 20100623
  Receipt Date: 20100618
  Transmission Date: 20101027
  Serious: Yes (Death)
  Sender: FDA-Public Use
  Company Number: GB-MERCK-1006GBR00090

PATIENT
  Age: 68 Year
  Sex: Female
  Weight: 94 kg

DRUGS (13)
  1. JANUVIA [Suspect]
     Route: 048
     Dates: start: 20100226
  2. ASPIRIN [Concomitant]
     Route: 065
  3. BENDROFLUMETHIAZIDE [Concomitant]
     Route: 065
  4. TERBUTALINE SULFATE [Concomitant]
     Route: 065
  5. ACETAMINOPHEN AND DIHYDROCODEINE BITARTRATE [Concomitant]
     Route: 065
  6. DILTIAZEM HYDROCHLORIDE [Concomitant]
     Route: 065
  7. DOXAZOSIN MESYLATE [Concomitant]
     Route: 065
  8. LANSOPRAZOLE [Concomitant]
     Route: 065
  9. METFORMIN [Concomitant]
     Route: 065
  10. RAMIPRIL [Concomitant]
     Route: 065
  11. SIMVASTATIN [Concomitant]
     Route: 065
  12. BUDESONIDE AND FORMOTEROL FUMARATE [Concomitant]
     Route: 065
  13. TRIMETHOPRIM [Concomitant]
     Route: 065

REACTIONS (1)
  - CARDIAC FAILURE [None]
